FAERS Safety Report 26102322 (Version 1)
Quarter: 2025Q4

REPORT INFORMATION
  Report Type: Spontaneous
  Country: US (occurrence: US)
  Receive Date: 20251128
  Receipt Date: 20251128
  Transmission Date: 20260118
  Serious: No
  Sender: ASCENT PHARMACEUTICALS INC
  Company Number: US-ASCENT-2025ASSPO00249

PATIENT

DRUGS (1)
  1. POTASSIUM CHLORIDE [Suspect]
     Active Substance: POTASSIUM CHLORIDE
     Indication: Product used for unknown indication
     Route: 048

REACTIONS (6)
  - Pain [Unknown]
  - Dysphagia [Unknown]
  - Throat irritation [Unknown]
  - Circumstance or information capable of leading to medication error [Unknown]
  - Product substitution issue [Unknown]
  - Product use complaint [Unknown]
